FAERS Safety Report 24391817 (Version 1)
Quarter: 2024Q4

REPORT INFORMATION
  Report Type: Spontaneous
  Country: US (occurrence: None)
  Receive Date: 20241002
  Receipt Date: 20241002
  Transmission Date: 20250115
  Serious: Yes (Hospitalization)
  Sender: Public
  Company Number: None

PATIENT
  Age: 79 Year
  Sex: Male
  Weight: 91 kg

DRUGS (1)
  1. IBUPROFEN [Suspect]
     Active Substance: IBUPROFEN
     Indication: Pain
     Dosage: OTHER FREQUENCY : OTHER;?
     Route: 048
     Dates: end: 20240129

REACTIONS (8)
  - Haemorrhage [None]
  - Gastrointestinal haemorrhage [None]
  - Abdominal pain [None]
  - Haematochezia [None]
  - Influenza like illness [None]
  - Headache [None]
  - Faeces discoloured [None]
  - Duodenal ulcer [None]

NARRATIVE: CASE EVENT DATE: 20240129
